FAERS Safety Report 18806819 (Version 1)
Quarter: 2021Q1

REPORT INFORMATION
  Report Type: Spontaneous
  Country: US (occurrence: US)
  Receive Date: 20210129
  Receipt Date: 20210129
  Transmission Date: 20210419
  Serious: Yes (Other)
  Sender: FDA-Public Use
  Company Number: US-BIOGEN-2021BI00970434

PATIENT
  Sex: Male

DRUGS (2)
  1. TECFIDERA [Suspect]
     Active Substance: DIMETHYL FUMARATE
     Indication: MULTIPLE SCLEROSIS
     Route: 065
  2. TECFIDERA [Suspect]
     Active Substance: DIMETHYL FUMARATE
     Route: 048
     Dates: end: 20200819

REACTIONS (5)
  - Infection susceptibility increased [Unknown]
  - Gastrointestinal disorder [Not Recovered/Not Resolved]
  - Flushing [Recovered/Resolved]
  - Immunosuppression [Not Recovered/Not Resolved]
  - Influenza [Recovered/Resolved]
